FAERS Safety Report 11645135 (Version 2)
Quarter: 2015Q4

REPORT INFORMATION
  Report Type: Spontaneous
  Country: US (occurrence: US)
  Receive Date: 20151020
  Receipt Date: 20151127
  Transmission Date: 20160304
  Serious: No
  Sender: FDA-Public Use
  Company Number: US-PFIZER INC-2015335381

PATIENT
  Age: 58 Year
  Sex: Female

DRUGS (2)
  1. ADVIL [Suspect]
     Active Substance: IBUPROFEN
     Indication: MYALGIA
     Dosage: TWO 200MG FILM-COATED TABLETS
     Dates: start: 20151005, end: 2015
  2. SUCRALOSE [Suspect]
     Active Substance: SUCRALOSE
     Dosage: UNK
     Dates: start: 20151005, end: 2015

REACTIONS (3)
  - Flatulence [Recovered/Resolved]
  - Abdominal distension [Recovered/Resolved]
  - Reaction to drug excipients [Recovered/Resolved]

NARRATIVE: CASE EVENT DATE: 20151005
